FAERS Safety Report 8953961 (Version 1)
Quarter: 2012Q4

REPORT INFORMATION
  Report Type: 
  Country: US (occurrence: US)
  Receive Date: 20121206
  Receipt Date: 20121206
  Transmission Date: 20130627
  Serious: Yes (Other)
  Sender: FDA-Public Use
  Company Number: CHPA2012US024192

PATIENT
  Age: 52 Year
  Sex: Female

DRUGS (1)
  1. DIPHENHYDRAMINE HCL [Suspect]
     Indication: NASOPHARYNGITIS
     Dosage: 1 packet, once or twice a day as needed
     Route: 048

REACTIONS (1)
  - Respiratory tract infection [Recovered/Resolved]
